FAERS Safety Report 25936179 (Version 2)
Quarter: 2025Q4

REPORT INFORMATION
  Report Type: Spontaneous
  Country: US (occurrence: US)
  Receive Date: 20251017
  Receipt Date: 20251021
  Transmission Date: 20260118
  Serious: Yes (Hospitalization, Other)
  Sender: AMGEN
  Company Number: US-AMGEN-USASP2025204324

PATIENT
  Age: 48 Year
  Sex: Male

DRUGS (2)
  1. BLINCYTO [Suspect]
     Active Substance: BLINATUMOMAB
     Indication: B precursor type acute leukaemia
     Dosage: 28 MICROGRAM, QD
     Route: 065
     Dates: start: 20251009, end: 202510
  2. BLINCYTO [Suspect]
     Active Substance: BLINATUMOMAB
     Dosage: 9 MICROGRAM, QD
     Route: 065
     Dates: start: 20251015, end: 202510

REACTIONS (3)
  - Immune effector cell-associated neurotoxicity syndrome [Recovered/Resolved]
  - Cytokine release syndrome [Not Recovered/Not Resolved]
  - Tremor [Recovered/Resolved]

NARRATIVE: CASE EVENT DATE: 20251001
